FAERS Safety Report 9282890 (Version 3)
Quarter: 2013Q2

REPORT INFORMATION
  Report Type: Report from Study
  Country: JP (occurrence: JP)
  Receive Date: 20130510
  Receipt Date: 20130607
  Transmission Date: 20140414
  Serious: Yes (Hospitalization)
  Sender: FDA-Public Use
  Company Number: JP-JNJFOC-20130417034

PATIENT
  Age: 5 Year
  Sex: Female
  Weight: 17 kg

DRUGS (93)
  1. RISPERIDONE [Suspect]
     Indication: IRRITABILITY
     Dosage: TWICE PER DAY 0.25 MG IN THE MORNING AND 0.25 MG IN THE EVENING
     Route: 048
     Dates: start: 20130317, end: 20130319
  2. RISPERIDONE [Suspect]
     Indication: IRRITABILITY
     Dosage: 0.5 MG IN THE EVENING
     Route: 048
     Dates: start: 20130316, end: 20130316
  3. RISPERIDONE [Suspect]
     Indication: IRRITABILITY
     Dosage: TWICE PER DAY 0.25 MG IN THE MORNING AND 0.5 MG IN THE EVENING
     Route: 048
     Dates: start: 20130314, end: 20130315
  4. RISPERIDONE [Suspect]
     Indication: IRRITABILITY
     Dosage: 0.5 MG IN THE EVENING
     Route: 048
     Dates: start: 20130216, end: 20130313
  5. RISPERIDONE [Suspect]
     Indication: IRRITABILITY
     Dosage: TWICE PER DAY 0.5 MG IN THE MORNING AND 0.5 MG IN THE EVENING
     Route: 048
     Dates: start: 20130214, end: 20130215
  6. RISPERIDONE [Suspect]
     Indication: IRRITABILITY
     Dosage: TWICE PER DAY 0.45 MG IN THE MORNING AND 0.5 MG IN THE EVENING
     Route: 048
     Dates: start: 20130213, end: 20130213
  7. RISPERIDONE [Suspect]
     Indication: IRRITABILITY
     Dosage: TWICE PER DAY 0.34 MG IN THE MORNING AND 0.5 MG IN THE EVENING
     Route: 048
     Dates: start: 20130212, end: 20130212
  8. RISPERIDONE [Suspect]
     Indication: IRRITABILITY
     Dosage: TWICE PER DAY 0.25 MG IN THE MORNING AND 0.5 MG IN THE EVENING
     Route: 048
     Dates: start: 20130211, end: 20130211
  9. RISPERIDONE [Suspect]
     Indication: IRRITABILITY
     Dosage: TWICE PER DAY 0.5 MG IN THE MORNING AND 0.5 MG IN THE EVENING
     Route: 048
     Dates: start: 20130210, end: 20130210
  10. RISPERIDONE [Suspect]
     Indication: IRRITABILITY
     Dosage: TWICE PER DAY 0.25 MG IN THE MORNING AND 0.5 MG IN THE EVENING
     Route: 048
     Dates: start: 20130209, end: 20130209
  11. RISPERIDONE [Suspect]
     Indication: IRRITABILITY
     Dosage: 0.5 MG IN THE EVENING
     Route: 048
     Dates: start: 20130208, end: 20130208
  12. RISPERIDONE [Suspect]
     Indication: IRRITABILITY
     Dosage: TWICE PER DAY 0.5 MG IN THE MORNING AND 0.5 MG IN THE EVENING
     Route: 048
     Dates: start: 20130206, end: 20130207
  13. RISPERIDONE [Suspect]
     Indication: IRRITABILITY
     Dosage: TWICE PER DAY 0.4 MG IN THE MORNING AND 0.4 MG IN THE EVENING
     Route: 048
     Dates: start: 20130205, end: 20130205
  14. RISPERIDONE [Suspect]
     Indication: IRRITABILITY
     Dosage: TWICE PER DAY 0.5 MG IN THE MORNING AND 0.5 MG IN THE EVENING
     Route: 048
     Dates: start: 20130203, end: 20130204
  15. RISPERIDONE [Suspect]
     Indication: IRRITABILITY
     Dosage: 0.5 MG IN THE EVENING
     Route: 048
     Dates: start: 20130202, end: 20130202
  16. RISPERIDONE [Suspect]
     Indication: IRRITABILITY
     Dosage: TWICE PER DAY 0.5 MG IN THE MORNING AND 0.5 MG IN THE EVENING
     Route: 048
     Dates: start: 20130118, end: 20130201
  17. RISPERIDONE [Suspect]
     Indication: IRRITABILITY
     Dosage: 0.5 MG IN THE EVENING
     Route: 048
     Dates: start: 20130126, end: 20130127
  18. RISPERIDONE [Suspect]
     Indication: IRRITABILITY
     Dosage: TWICE PER DAY 0.5 MG IN THE MORNING AND 0.5 MG IN THE EVENING
     Route: 048
     Dates: start: 20130124, end: 20130126
  19. RISPERIDONE [Suspect]
     Indication: IRRITABILITY
     Dosage: TWICE PER DAY 0.25 MG IN THE MORNING AND 0.5 MG IN THE EVENING
     Route: 048
     Dates: start: 20130116, end: 20130123
  20. RISPERIDONE [Suspect]
     Indication: IRRITABILITY
     Dosage: TWICE PER DAY 0.25 MG IN THE MORNING AND 0.25 MG IN THE EVENING
     Route: 048
     Dates: start: 20130112, end: 20130115
  21. RISPERIDONE [Suspect]
     Indication: IRRITABILITY
     Dosage: 0.25 MG PER DAY IN THE EVENING
     Route: 048
     Dates: start: 20130109, end: 20130111
  22. RISPERIDONE [Suspect]
     Indication: IRRITABILITY
     Dosage: 0.25 MG IN THE EVENING
     Route: 048
     Dates: start: 20121129, end: 20130108
  23. RISPERIDONE [Suspect]
     Indication: IRRITABILITY
     Dosage: TWICE PER DAY 0.25 MG IN THE MORNING AND 0.25 MG IN THE EVENING
     Route: 048
     Dates: start: 20121128, end: 20121128
  24. RISPERIDONE [Suspect]
     Indication: IRRITABILITY
     Dosage: TWICE PER DAY 0.25 MG IN THE MORNING AND 0.5 MG IN THE EVENING
     Route: 048
     Dates: start: 20121126, end: 20121127
  25. RISPERIDONE [Suspect]
     Indication: IRRITABILITY
     Dosage: 0.25 MG IN THE MORNING
     Route: 048
     Dates: start: 20121122, end: 20121123
  26. RISPERIDONE [Suspect]
     Indication: IRRITABILITY
     Dosage: TWICE PER DAY 0.25 MG IN THE MORNING AND 0.5 MG IN THE EVENING
     Route: 048
     Dates: start: 20121121, end: 20121121
  27. RISPERIDONE [Suspect]
     Indication: IRRITABILITY
     Dosage: 0.25 MG IN THE MORNING
     Route: 048
     Dates: start: 20121120, end: 20121120
  28. RISPERIDONE [Suspect]
     Indication: IRRITABILITY
     Dosage: TWICE PER DAY 0.25 MG IN THE MORNING AND 0.25 MG IN THE EVENING
     Route: 048
     Dates: start: 20121117, end: 20121118
  29. RISPERIDONE [Suspect]
     Indication: IRRITABILITY
     Dosage: 0.25 MG IN THE EVENING
     Route: 048
     Dates: start: 20121114, end: 20121115
  30. RISPERIDONE [Suspect]
     Indication: IRRITABILITY
     Route: 048
     Dates: start: 20130417
  31. RISPERIDONE [Suspect]
     Indication: IRRITABILITY
     Dosage: 0.5 MG IN THE EVENING
     Route: 048
     Dates: start: 20130414, end: 20130415
  32. RISPERIDONE [Suspect]
     Indication: IRRITABILITY
     Dosage: 0.5 MG IN THE EVENING
     Route: 048
     Dates: start: 20130328, end: 20130412
  33. RISPERIDONE [Suspect]
     Indication: IRRITABILITY
     Dosage: TWICE PER DAY 0.25 MG IN THE MORNING AND 0.5 MG IN THE EVENING
     Route: 048
     Dates: start: 20130327, end: 20130327
  34. RISPERIDONE [Suspect]
     Indication: IRRITABILITY
     Dosage: TWICE PER DAY 0.25 MG IN THE MORNING AND 0.25 MG IN THE EVENING
     Route: 048
     Dates: start: 20130323, end: 20130326
  35. RISPERIDONE [Suspect]
     Indication: IRRITABILITY
     Dosage: 0.25 MG IN THE MORNING
     Route: 048
     Dates: start: 20130321, end: 20130321
  36. RISPERIDONE [Suspect]
     Indication: IRRITABILITY
     Dosage: TWICE PER DAY 0.25 MG IN THE MORNING AND 0.25 MG IN THE EVENING
     Route: 048
     Dates: start: 20130320, end: 20130320
  37. RISPERIDONE [Suspect]
     Indication: AUTISM SPECTRUM DISORDER
     Dosage: 0.25 MG IN THE EVENING
     Route: 048
     Dates: start: 20121114, end: 20121115
  38. RISPERIDONE [Suspect]
     Indication: AUTISM SPECTRUM DISORDER
     Dosage: 0.5 MG IN THE EVENING
     Route: 048
     Dates: start: 20130328, end: 20130412
  39. RISPERIDONE [Suspect]
     Indication: AUTISM SPECTRUM DISORDER
     Dosage: TWICE PER DAY 0.25 MG IN THE MORNING AND 0.5 MG IN THE EVENING
     Route: 048
     Dates: start: 20130327, end: 20130327
  40. RISPERIDONE [Suspect]
     Indication: AUTISM SPECTRUM DISORDER
     Dosage: TWICE PER DAY 0.25 MG IN THE MORNING AND 0.25 MG IN THE EVENING
     Route: 048
     Dates: start: 20130323, end: 20130326
  41. RISPERIDONE [Suspect]
     Indication: AUTISM SPECTRUM DISORDER
     Dosage: 0.25 MG IN THE MORNING
     Route: 048
     Dates: start: 20130321, end: 20130321
  42. RISPERIDONE [Suspect]
     Indication: AUTISM SPECTRUM DISORDER
     Dosage: TWICE PER DAY 0.25 MG IN THE MORNING AND 0.25 MG IN THE EVENING
     Route: 048
     Dates: start: 20130320, end: 20130320
  43. RISPERIDONE [Suspect]
     Indication: AUTISM SPECTRUM DISORDER
     Dosage: TWICE PER DAY 0.25 MG IN THE MORNING AND 0.25 MG IN THE EVENING
     Route: 048
     Dates: start: 20130317, end: 20130319
  44. RISPERIDONE [Suspect]
     Indication: AUTISM SPECTRUM DISORDER
     Dosage: 0.5 MG IN THE EVENING
     Route: 048
     Dates: start: 20130316, end: 20130316
  45. RISPERIDONE [Suspect]
     Indication: AUTISM SPECTRUM DISORDER
     Dosage: TWICE PER DAY 0.25 MG IN THE MORNING AND 0.5 MG IN THE EVENING
     Route: 048
     Dates: start: 20130314, end: 20130315
  46. RISPERIDONE [Suspect]
     Indication: AUTISM SPECTRUM DISORDER
     Dosage: 0.5 MG IN THE EVENING
     Route: 048
     Dates: start: 20130216, end: 20130313
  47. RISPERIDONE [Suspect]
     Indication: AUTISM SPECTRUM DISORDER
     Dosage: TWICE PER DAY 0.5 MG IN THE MORNING AND 0.5 MG IN THE EVENING
     Route: 048
     Dates: start: 20130214, end: 20130215
  48. RISPERIDONE [Suspect]
     Indication: AUTISM SPECTRUM DISORDER
     Dosage: TWICE PER DAY 0.45 MG IN THE MORNING AND 0.5 MG IN THE EVENING
     Route: 048
     Dates: start: 20130213, end: 20130213
  49. RISPERIDONE [Suspect]
     Indication: AUTISM SPECTRUM DISORDER
     Dosage: TWICE PER DAY 0.34 MG IN THE MORNING AND 0.5 MG IN THE EVENING
     Route: 048
     Dates: start: 20130212, end: 20130212
  50. RISPERIDONE [Suspect]
     Indication: AUTISM SPECTRUM DISORDER
     Dosage: TWICE PER DAY 0.25 MG IN THE MORNING AND 0.5 MG IN THE EVENING
     Route: 048
     Dates: start: 20130211, end: 20130211
  51. RISPERIDONE [Suspect]
     Indication: AUTISM SPECTRUM DISORDER
     Dosage: TWICE PER DAY 0.5 MG IN THE MORNING AND 0.5 MG IN THE EVENING
     Route: 048
     Dates: start: 20130210, end: 20130210
  52. RISPERIDONE [Suspect]
     Indication: AUTISM SPECTRUM DISORDER
     Dosage: TWICE PER DAY 0.25 MG IN THE MORNING AND 0.5 MG IN THE EVENING
     Route: 048
     Dates: start: 20130209, end: 20130209
  53. RISPERIDONE [Suspect]
     Indication: AUTISM SPECTRUM DISORDER
     Dosage: 0.5 MG IN THE EVENING
     Route: 048
     Dates: start: 20130208, end: 20130208
  54. RISPERIDONE [Suspect]
     Indication: AUTISM SPECTRUM DISORDER
     Dosage: TWICE PER DAY 0.5 MG IN THE MORNING AND 0.5 MG IN THE EVENING
     Route: 048
     Dates: start: 20130206, end: 20130207
  55. RISPERIDONE [Suspect]
     Indication: AUTISM SPECTRUM DISORDER
     Dosage: TWICE PER DAY 0.4 MG IN THE MORNING AND 0.4 MG IN THE EVENING
     Route: 048
     Dates: start: 20130205, end: 20130205
  56. RISPERIDONE [Suspect]
     Indication: AUTISM SPECTRUM DISORDER
     Dosage: TWICE PER DAY 0.5 MG IN THE MORNING AND 0.5 MG IN THE EVENING
     Route: 048
     Dates: start: 20130203, end: 20130204
  57. RISPERIDONE [Suspect]
     Indication: AUTISM SPECTRUM DISORDER
     Dosage: 0.5 MG IN THE EVENING
     Route: 048
     Dates: start: 20130202, end: 20130202
  58. RISPERIDONE [Suspect]
     Indication: AUTISM SPECTRUM DISORDER
     Dosage: TWICE PER DAY 0.5 MG IN THE MORNING AND 0.5 MG IN THE EVENING
     Route: 048
     Dates: start: 20130118, end: 20130201
  59. RISPERIDONE [Suspect]
     Indication: AUTISM SPECTRUM DISORDER
     Dosage: 0.5 MG IN THE EVENING
     Route: 048
     Dates: start: 20130126, end: 20130127
  60. RISPERIDONE [Suspect]
     Indication: AUTISM SPECTRUM DISORDER
     Dosage: TWICE PER DAY 0.5 MG IN THE MORNING AND 0.5 MG IN THE EVENING
     Route: 048
     Dates: start: 20130124, end: 20130126
  61. RISPERIDONE [Suspect]
     Indication: AUTISM SPECTRUM DISORDER
     Dosage: TWICE PER DAY 0.25 MG IN THE MORNING AND 0.5 MG IN THE EVENING
     Route: 048
     Dates: start: 20130116, end: 20130123
  62. RISPERIDONE [Suspect]
     Indication: AUTISM SPECTRUM DISORDER
     Dosage: TWICE PER DAY 0.25 MG IN THE MORNING AND 0.25 MG IN THE EVENING
     Route: 048
     Dates: start: 20130112, end: 20130115
  63. RISPERIDONE [Suspect]
     Indication: AUTISM SPECTRUM DISORDER
     Dosage: 0.25 MG PER DAY IN THE EVENING
     Route: 048
     Dates: start: 20130109, end: 20130111
  64. RISPERIDONE [Suspect]
     Indication: AUTISM SPECTRUM DISORDER
     Dosage: 0.25 MG IN THE EVENING
     Route: 048
     Dates: start: 20121129, end: 20130108
  65. RISPERIDONE [Suspect]
     Indication: AUTISM SPECTRUM DISORDER
     Dosage: TWICE PER DAY 0.25 MG IN THE MORNING AND 0.25 MG IN THE EVENING
     Route: 048
     Dates: start: 20121128, end: 20121128
  66. RISPERIDONE [Suspect]
     Indication: AUTISM SPECTRUM DISORDER
     Dosage: TWICE PER DAY 0.25 MG IN THE MORNING AND 0.5 MG IN THE EVENING
     Route: 048
     Dates: start: 20121126, end: 20121127
  67. RISPERIDONE [Suspect]
     Indication: AUTISM SPECTRUM DISORDER
     Dosage: 0.25 MG IN THE MORNING
     Route: 048
     Dates: start: 20121122, end: 20121123
  68. RISPERIDONE [Suspect]
     Indication: AUTISM SPECTRUM DISORDER
     Dosage: TWICE PER DAY 0.25 MG IN THE MORNING AND 0.5 MG IN THE EVENING
     Route: 048
     Dates: start: 20121121, end: 20121121
  69. RISPERIDONE [Suspect]
     Indication: AUTISM SPECTRUM DISORDER
     Dosage: 0.25 MG IN THE MORNING
     Route: 048
     Dates: start: 20121120, end: 20121120
  70. RISPERIDONE [Suspect]
     Indication: AUTISM SPECTRUM DISORDER
     Dosage: TWICE PER DAY 0.25 MG IN THE MORNING AND 0.25 MG IN THE EVENING
     Route: 048
     Dates: start: 20121117, end: 20121118
  71. RISPERIDONE [Suspect]
     Indication: AUTISM SPECTRUM DISORDER
     Dosage: 0.5 MG IN THE EVENING
     Route: 048
     Dates: start: 20130414, end: 20130415
  72. RISPERIDONE [Suspect]
     Indication: AUTISM SPECTRUM DISORDER
     Route: 048
     Dates: start: 20130417
  73. HEAVY MAGNESIUM OXIDE [Concomitant]
     Route: 048
     Dates: end: 20130130
  74. HEAVY MAGNESIUM OXIDE [Concomitant]
     Route: 048
     Dates: start: 20130126
  75. HEAVY MAGNESIUM OXIDE [Concomitant]
     Route: 048
     Dates: start: 20130131, end: 20130131
  76. MUCODYNE [Concomitant]
     Route: 048
     Dates: start: 20130126
  77. MUCOSAL [Concomitant]
     Route: 048
     Dates: start: 20130126
  78. PERIACTIN [Concomitant]
     Route: 048
     Dates: start: 20130126
  79. CRAVIT [Concomitant]
     Route: 047
     Dates: start: 20130301
  80. CRAVIT [Concomitant]
     Route: 047
     Dates: start: 20130422, end: 20130424
  81. LAC-B [Concomitant]
     Route: 048
     Dates: start: 20130327, end: 20130402
  82. LAC-B [Concomitant]
     Route: 048
     Dates: start: 20130413, end: 20130415
  83. GOREISAN [Concomitant]
     Dosage: Q.S
     Route: 048
     Dates: start: 20130418, end: 20130421
  84. GOREISAN [Concomitant]
     Route: 048
     Dates: start: 20130415, end: 20130415
  85. CEFAZOLIN SODIUM [Concomitant]
     Indication: INFECTION PROPHYLAXIS
     Route: 042
     Dates: start: 20130426, end: 20130426
  86. SEISHOKU [Concomitant]
     Indication: INFECTION PROPHYLAXIS
     Route: 042
     Dates: start: 20130426, end: 20130426
  87. SOLDEM 1 [Concomitant]
     Indication: PREOPERATIVE CARE
     Route: 042
     Dates: start: 20130426, end: 20130426
  88. VEEN-D [Concomitant]
     Indication: FLUID REPLACEMENT
     Route: 042
     Dates: start: 20130426, end: 20130426
  89. ANHIBA [Concomitant]
     Indication: ANALGESIC THERAPY
     Route: 054
     Dates: start: 20130426, end: 20130426
  90. ANAPEINE [Concomitant]
     Indication: ANAESTHESIA PROCEDURE
     Route: 042
     Dates: start: 20130426, end: 20130426
  91. OXYGEN [Concomitant]
     Indication: ANAESTHESIA PROCEDURE
     Route: 065
     Dates: start: 20130426, end: 20130426
  92. NITROUS OXIDE [Concomitant]
     Indication: ANAESTHESIA PROCEDURE
     Route: 065
     Dates: start: 20130426, end: 20130426
  93. SEVOFRANE [Concomitant]
     Indication: ANAESTHESIA PROCEDURE
     Route: 065
     Dates: start: 20130426, end: 20130426

REACTIONS (1)
  - Inguinal hernia [Recovered/Resolved]
